FAERS Safety Report 4849300-1 (Version None)
Quarter: 2005Q4

REPORT INFORMATION
  Report Type: 
  Country: None (occurrence: None)
  Receive Date: 20051207
  Receipt Date: 20051118
  Transmission Date: 20060501
  Serious: Yes (Hospitalization, Disabling)
  Sender: FDA-Public Use
  Company Number: 408870

PATIENT
  Age: 33 Year
  Sex: Male
  Weight: 81.6 kg

DRUGS (2)
  1. ACCUTANE [Suspect]
     Indication: ACNE
     Dosage: 20 MG 2 PER DAY ORAL
     Route: 048
     Dates: start: 20010615, end: 20011115
  2. ACETAMINOPHEN [Concomitant]

REACTIONS (56)
  - ABDOMINAL DISTENSION [None]
  - ABDOMINAL PAIN [None]
  - ABSCESS [None]
  - ANAEMIA [None]
  - ANHEDONIA [None]
  - ASTHENIA [None]
  - BACK PAIN [None]
  - BARRETT'S OESOPHAGUS [None]
  - COLITIS [None]
  - COLITIS ULCERATIVE [None]
  - CROHN'S DISEASE [None]
  - DEFAECATION URGENCY [None]
  - DIARRHOEA [None]
  - DRUG INEFFECTIVE [None]
  - DYSPEPSIA [None]
  - ECONOMIC PROBLEM [None]
  - EYE DISORDER [None]
  - FEELING JITTERY [None]
  - FREQUENT BOWEL MOVEMENTS [None]
  - GALLBLADDER DISORDER [None]
  - GASTRIC DISORDER [None]
  - GASTRITIS [None]
  - GASTROINTESTINAL DISORDER [None]
  - HEPATIC STEATOSIS [None]
  - HYPERSENSITIVITY [None]
  - INCONTINENCE [None]
  - INFLAMMATION [None]
  - INFLAMMATORY BOWEL DISEASE [None]
  - INJECTION SITE THROMBOSIS [None]
  - INJURY [None]
  - INTESTINAL HAEMORRHAGE [None]
  - INTESTINAL OBSTRUCTION [None]
  - IRRITABLE BOWEL SYNDROME [None]
  - LARGE INTESTINAL ULCER [None]
  - LYMPHOID TISSUE HYPERPLASIA [None]
  - MALAISE [None]
  - MUCOUS STOOLS [None]
  - MULTI-ORGAN DISORDER [None]
  - NASOPHARYNGITIS [None]
  - NAUSEA [None]
  - NECK INJURY [None]
  - OESOPHAGEAL DISORDER [None]
  - PNEUMONIA [None]
  - POSTOPERATIVE WOUND INFECTION [None]
  - PROCTITIS [None]
  - PSEUDOPOLYPOSIS [None]
  - PYREXIA [None]
  - RECTAL HAEMORRHAGE [None]
  - RED BLOOD CELL SEDIMENTATION RATE INCREASED [None]
  - SCAR [None]
  - SMALL INTESTINAL OBSTRUCTION [None]
  - SOMNOLENCE [None]
  - VISION BLURRED [None]
  - VOMITING [None]
  - WEIGHT DECREASED [None]
  - WHITE BLOOD CELLS STOOL POSITIVE [None]
